FAERS Safety Report 18249080 (Version 12)
Quarter: 2021Q1

REPORT INFORMATION
  Report Type: Report from Study
  Country: BR (occurrence: BR)
  Receive Date: 20200909
  Receipt Date: 20210223
  Transmission Date: 20210419
  Serious: Yes (Death, Life-Threatening, Hospitalization)
  Sender: FDA-Public Use
  Company Number: BR-ROCHE-2661714

PATIENT
  Age: 66 Year
  Sex: Female
  Weight: 60 kg

DRUGS (52)
  1. HYDROXYCHLOROQUINE [Concomitant]
     Active Substance: HYDROXYCHLOROQUINE
     Indication: COVID-19
     Dates: start: 20200806, end: 20200811
  2. ROCURONIO [Concomitant]
     Active Substance: ROCURONIUM BROMIDE
     Indication: NEUROMUSCULAR BLOCKADE
     Dates: start: 20200815, end: 20200818
  3. HEPARIN [Concomitant]
     Active Substance: HEPARIN SODIUM
     Indication: PULMONARY EMBOLISM
     Dates: start: 20200821
  4. MEROPENEM. [Concomitant]
     Active Substance: MEROPENEM
     Indication: INFECTION
     Dates: start: 20200821, end: 20200828
  5. MIDAZOLAM. [Concomitant]
     Active Substance: MIDAZOLAM
     Indication: SEDATION
     Dates: start: 20200813
  6. OXYGEN. [Concomitant]
     Active Substance: OXYGEN
     Route: 007
     Dates: start: 20200829
  7. OXYGEN. [Concomitant]
     Active Substance: OXYGEN
     Route: 007
     Dates: start: 20200815
  8. OXYGEN. [Concomitant]
     Active Substance: OXYGEN
     Route: 007
     Dates: start: 20200831
  9. OXYGEN. [Concomitant]
     Active Substance: OXYGEN
     Route: 007
     Dates: start: 20200828
  10. OXYGEN. [Concomitant]
     Active Substance: OXYGEN
     Route: 007
     Dates: start: 20200813
  11. OXYGEN. [Concomitant]
     Active Substance: OXYGEN
     Dosage: 100 L/MIN
     Route: 055
     Dates: start: 20200813
  12. OXYGEN. [Concomitant]
     Active Substance: OXYGEN
     Route: 007
     Dates: start: 20200821
  13. OXYGEN. [Concomitant]
     Active Substance: OXYGEN
     Route: 007
     Dates: start: 20200822
  14. OXYGEN. [Concomitant]
     Active Substance: OXYGEN
     Route: 007
     Dates: start: 20200815
  15. OXYGEN. [Concomitant]
     Active Substance: OXYGEN
     Route: 007
     Dates: start: 20200816
  16. OXYGEN. [Concomitant]
     Active Substance: OXYGEN
     Route: 007
     Dates: start: 20200830
  17. OXYGEN. [Concomitant]
     Active Substance: OXYGEN
     Route: 007
     Dates: start: 20200814
  18. CISATRACURIO [Concomitant]
     Indication: NEUROMUSCULAR BLOCKADE
     Dates: start: 20200813, end: 20200815
  19. NORADRENALINE [Concomitant]
     Active Substance: NOREPINEPHRINE
     Indication: SHOCK
     Dates: start: 20200813, end: 20200830
  20. VANCOMYCIN [Concomitant]
     Active Substance: VANCOMYCIN
     Indication: INFECTION
     Dates: start: 20200821, end: 20200828
  21. VASOPRESSIN. [Concomitant]
     Active Substance: VASOPRESSIN
     Indication: SHOCK
     Dates: start: 20200821, end: 20200825
  22. OXYGEN. [Concomitant]
     Active Substance: OXYGEN
     Dosage: SUBSEQUENT THERAPY ON 26?AUG?2020, 25?AUG?2020, 21?AUG?2020,02?SEP?2020
     Route: 007
     Dates: start: 20200824
  23. OXYGEN. [Concomitant]
     Active Substance: OXYGEN
     Route: 007
     Dates: start: 20200822
  24. OXYGEN. [Concomitant]
     Active Substance: OXYGEN
     Dosage: 100 L/MIN
     Route: 055
     Dates: start: 20200813
  25. OXYGEN. [Concomitant]
     Active Substance: OXYGEN
     Route: 007
     Dates: start: 20200818
  26. OXYGEN. [Concomitant]
     Active Substance: OXYGEN
     Route: 007
     Dates: start: 20200827
  27. OXYGEN. [Concomitant]
     Active Substance: OXYGEN
     Route: 007
     Dates: start: 20200831
  28. OXYGEN. [Concomitant]
     Active Substance: OXYGEN
     Route: 007
     Dates: start: 20200902
  29. OXYGEN. [Concomitant]
     Active Substance: OXYGEN
     Route: 007
     Dates: start: 20200823
  30. OXYGEN. [Concomitant]
     Active Substance: OXYGEN
     Route: 007
     Dates: start: 20200817
  31. OXYGEN. [Concomitant]
     Active Substance: OXYGEN
     Route: 007
     Dates: start: 20200901
  32. OXYGEN. [Concomitant]
     Active Substance: OXYGEN
     Route: 007
     Dates: start: 20200825
  33. OXYGEN. [Concomitant]
     Active Substance: OXYGEN
     Route: 007
     Dates: start: 20200830
  34. OXYGEN. [Concomitant]
     Active Substance: OXYGEN
     Route: 007
     Dates: start: 20200819
  35. TOCILIZUMAB. [Suspect]
     Active Substance: TOCILIZUMAB
     Indication: COVID-19 PNEUMONIA
     Dosage: AT 17:50
     Route: 042
     Dates: start: 20200813
  36. REMDESIVIR. [Suspect]
     Active Substance: REMDESIVIR
     Indication: COVID-19 PNEUMONIA
     Dosage: DATE OF MOST RECENT DOSE OF REMDESIVIR PRIOR TO EVENTS ONSET: 20/AUG/2020 AT 14:49
     Route: 042
     Dates: start: 20200813
  37. AZITHROMYCIN ANHYDROUS. [Concomitant]
     Active Substance: AZITHROMYCIN ANHYDROUS
     Indication: COVID-19
     Dates: start: 20200806, end: 20200811
  38. DEXAMETHASONE. [Concomitant]
     Active Substance: DEXAMETHASONE
     Indication: COVID-19
     Dates: start: 20200811, end: 20200820
  39. HYDROCORTISONE. [Concomitant]
     Active Substance: HYDROCORTISONE
     Indication: SHOCK
     Dates: start: 20200820
  40. FENTANIL [Concomitant]
     Active Substance: FENTANYL
     Indication: SEDATION
     Dates: start: 20200813
  41. OXYGEN. [Concomitant]
     Active Substance: OXYGEN
     Route: 007
     Dates: start: 20200816
  42. OXYGEN. [Concomitant]
     Active Substance: OXYGEN
     Route: 007
     Dates: start: 20200826
  43. OXYGEN. [Concomitant]
     Active Substance: OXYGEN
     Route: 007
     Dates: start: 20200820
  44. OXYGEN. [Concomitant]
     Active Substance: OXYGEN
     Route: 007
     Dates: start: 20200827
  45. CLEXANE [Concomitant]
     Active Substance: ENOXAPARIN SODIUM
     Indication: PULMONARY EMBOLISM
     Dates: start: 20200811, end: 20200821
  46. OXYGEN. [Concomitant]
     Active Substance: OXYGEN
     Route: 007
     Dates: start: 20200824
  47. OXYGEN. [Concomitant]
     Active Substance: OXYGEN
     Route: 007
     Dates: start: 20200814
  48. OXYGEN. [Concomitant]
     Active Substance: OXYGEN
     Dosage: SUBSEQUENT THERAPY ON  20?AUG?2020, 29?AUG?2020, 17?AUG?2020,28?AUG?2020
     Route: 007
     Dates: start: 20200818
  49. OXYGEN. [Concomitant]
     Active Substance: OXYGEN
     Dosage: 100
     Dates: start: 20200813
  50. OXYGEN. [Concomitant]
     Active Substance: OXYGEN
     Route: 007
     Dates: start: 20200814
  51. OXYGEN. [Concomitant]
     Active Substance: OXYGEN
     Route: 007
     Dates: start: 20200819
  52. OXYGEN. [Concomitant]
     Active Substance: OXYGEN
     Route: 007
     Dates: start: 20200901

REACTIONS (4)
  - Acute kidney injury [Not Recovered/Not Resolved]
  - Intestinal ischaemia [Fatal]
  - Pneumothorax [Recovering/Resolving]
  - Pneumomediastinum [Recovering/Resolving]

NARRATIVE: CASE EVENT DATE: 20200814
